FAERS Safety Report 8959116 (Version 1)
Quarter: 2012Q4

REPORT INFORMATION
  Report Type: Report from Study
  Country: AU (occurrence: AU)
  Receive Date: 20121212
  Receipt Date: 20121212
  Transmission Date: 20130627
  Serious: Yes (Other)
  Sender: FDA-Public Use
  Company Number: AU-ROCHE-1165142

PATIENT
  Sex: Female

DRUGS (10)
  1. TOCILIZUMAB [Suspect]
     Indication: RHEUMATOID ARTHRITIS
     Route: 042
     Dates: start: 20110330
  2. NATRILIX [Concomitant]
     Indication: BLOOD PRESSURE
     Route: 048
  3. KARVEA [Concomitant]
     Indication: BLOOD PRESSURE
     Route: 048
  4. ZOLOFT [Concomitant]
     Indication: DEPRESSION
     Route: 048
  5. MERSYNDOL FORTE [Concomitant]
     Indication: PAIN
     Route: 065
  6. LIPITOR [Concomitant]
     Indication: BLOOD CHOLESTEROL INCREASED
     Route: 065
  7. NEXIUM [Concomitant]
     Route: 065
  8. QUINATE (AUSTRALIA) [Concomitant]
     Indication: MUSCLE SPASMS
     Route: 065
  9. MOBIC [Concomitant]
     Route: 065
  10. VALIUM [Concomitant]
     Indication: MUSCLE SPASMS
     Route: 065

REACTIONS (2)
  - Musculoskeletal pain [Recovering/Resolving]
  - Osteoarthritis [Unknown]
